FAERS Safety Report 24433009 (Version 1)
Quarter: 2024Q4

REPORT INFORMATION
  Report Type: Spontaneous
  Country: CH (occurrence: CH)
  Receive Date: 20241014
  Receipt Date: 20241014
  Transmission Date: 20250115
  Serious: Yes (Other)
  Sender: SANOFI AVENTIS
  Company Number: None

PATIENT
  Age: 64 Year
  Sex: Female
  Weight: 81 kg

DRUGS (9)
  1. DUPIXENT [Suspect]
     Active Substance: DUPILUMAB
     Indication: Asthma
     Dosage: 400 MG, 1X, 200 MG 2 INJECTIONS IN 2 SITES
     Route: 058
     Dates: start: 20240904, end: 20240904
  2. SYMBICORT [Concomitant]
     Active Substance: BUDESONIDE\FORMOTEROL FUMARATE DIHYDRATE
     Dosage: 400/12 : 2-2-2
     Route: 055
  3. SPIRIVA RESPIMAT [Concomitant]
     Active Substance: TIOTROPIUM BROMIDE
     Dosage: 2-0-0
     Route: 055
  4. BILASTINE [Concomitant]
     Active Substance: BILASTINE
     Dosage: N/A N/A N/A DOSE EVERY 1 DAY
     Route: 048
  5. SINGULAIR [Concomitant]
     Active Substance: MONTELUKAST SODIUM
     Dosage: N/A N/A N/A DOSE EVERY 1 DAY
     Route: 048
  6. PULMICORT TURBUHALER [Concomitant]
     Active Substance: BUDESONIDE
     Dosage: 400 UG N/A DOSE EVERY 1 DAY
     Route: 048
  7. PERINDOPRIL [Concomitant]
     Active Substance: PERINDOPRIL
     Dosage: 10 UG N/A DOSE EVERY 1 DAY
     Route: 048
  8. WEGOVY [Concomitant]
     Active Substance: SEMAGLUTIDE
     Dosage: N/A N/A N/A DOSE EVERY 1 WEEK
     Route: 058
  9. PROBIOTICS NOS [Concomitant]
     Active Substance: PROBIOTICS NOS
     Dosage: N/A N/A N/A DOSE EVERY 1 DAY
     Route: 048

REACTIONS (1)
  - Panniculitis [Recovered/Resolved]

NARRATIVE: CASE EVENT DATE: 20240907
